FAERS Safety Report 14713290 (Version 1)
Quarter: 2018Q2

REPORT INFORMATION
  Report Type: Spontaneous
  Country: GB (occurrence: GB)
  Receive Date: 20180404
  Receipt Date: 20180404
  Transmission Date: 20180711
  Serious: Yes (Other)
  Sender: FDA-Public Use
  Company Number: GB-UCBSA-2018014203

PATIENT
  Age: 28 Year
  Sex: Female
  Weight: 60 kg

DRUGS (5)
  1. KEPPRA [Suspect]
     Active Substance: LEVETIRACETAM
     Indication: MIGRAINE
     Dosage: 250 MG, 2X/DAY (BID)
     Route: 048
     Dates: start: 20180309, end: 20180315
  2. CILEST [Concomitant]
     Active Substance: ETHINYL ESTRADIOL\NORGESTIMATE
     Indication: PRODUCT USED FOR UNKNOWN INDICATION
     Dosage: UNK
  3. ETHINYLESTRADIOL W/NORGESTIMATE [Concomitant]
     Indication: PRODUCT USED FOR UNKNOWN INDICATION
  4. ESOMEPRAZOLE MAGNESIUM. [Concomitant]
     Active Substance: ESOMEPRAZOLE MAGNESIUM
     Indication: PRODUCT USED FOR UNKNOWN INDICATION
     Dosage: UNK
  5. KEPPRA [Suspect]
     Active Substance: LEVETIRACETAM
     Dosage: 250 MG, ONCE DAILY (QD)
     Route: 048
     Dates: start: 20180228

REACTIONS (12)
  - Restless legs syndrome [Recovered/Resolved]
  - Hypermobility syndrome [Unknown]
  - Condition aggravated [Unknown]
  - Joint laxity [Unknown]
  - Suicidal ideation [Unknown]
  - Somnolence [Unknown]
  - Dizziness [Unknown]
  - Muscular weakness [Unknown]
  - Anger [Unknown]
  - Oropharyngeal pain [Unknown]
  - Feeling drunk [Unknown]
  - Mood swings [Unknown]

NARRATIVE: CASE EVENT DATE: 20180228
